FAERS Safety Report 20663069 (Version 1)
Quarter: 2022Q2

REPORT INFORMATION
  Report Type: Spontaneous
  Country: US (occurrence: US)
  Receive Date: 20220401
  Receipt Date: 20220401
  Transmission Date: 20220721
  Serious: No
  Sender: FDA-Public Use
  Company Number: US-drreddys-SPO/USA/22/0148087

PATIENT
  Age: 46 Year
  Sex: Male

DRUGS (1)
  1. ZENATANE [Suspect]
     Active Substance: ISOTRETINOIN
     Indication: Product used for unknown indication
     Dosage: RMA ISSUE DATE: 19 NOVEMBER 2021 05:04:52 PM, 22 DECEMBER 2021 10:38:44 AM, 18 JANUARY 2022 08:23:25

REACTIONS (1)
  - Arthralgia [Unknown]
